FAERS Safety Report 24713750 (Version 1)
Quarter: 2024Q4

REPORT INFORMATION
  Report Type: Report from Study
  Country: CN (occurrence: CN)
  Receive Date: 20241209
  Receipt Date: 20241209
  Transmission Date: 20250115
  Serious: Yes (Other)
  Sender: SANDOZ
  Company Number: CN-SANDOZ-SDZ2024CN100127

PATIENT
  Age: 67 Year
  Weight: 60 kg

DRUGS (2)
  1. ZOLEDRONIC ACID [Suspect]
     Active Substance: ZOLEDRONIC ACID
     Indication: Osteoporosis
     Dosage: INTRAVENOUS INFUSION 5MG
     Route: 042
     Dates: start: 2023
  2. ZOLEDRONIC ACID [Suspect]
     Active Substance: ZOLEDRONIC ACID
     Dosage: INTRAVENOUS INFUSION 5MG
     Route: 042
     Dates: start: 202410

REACTIONS (2)
  - Surgery [Unknown]
  - Drug ineffective [Unknown]
